FAERS Safety Report 5218933-5 (Version None)
Quarter: 2007Q1

REPORT INFORMATION
  Report Type: 
  Country: None (occurrence: None)
  Receive Date: 20070125
  Receipt Date: 20070118
  Transmission Date: 20070707
  Serious: Yes (Other)
  Sender: FDA-Public Use
  Company Number: US-JNJFOC-20070104530

PATIENT
  Sex: Male
  Weight: 117.94 kg

DRUGS (10)
  1. INFLIXIMAB [Suspect]
     Indication: RHEUMATOID ARTHRITIS
     Route: 042
  2. ASPIRIN [Concomitant]
  3. IBUPROFEN [Concomitant]
  4. LOTENSIN [Concomitant]
  5. METHOTREXATE [Concomitant]
  6. SERZONE [Concomitant]
  7. TOPROL-XL [Concomitant]
  8. PRAVACHOL [Concomitant]
  9. LAMICTAL [Concomitant]
  10. HUMIRA [Concomitant]

REACTIONS (1)
  - BASAL CELL CARCINOMA [None]
